FAERS Safety Report 25520812 (Version 1)
Quarter: 2025Q3

REPORT INFORMATION
  Report Type: Spontaneous
  Country: RU (occurrence: RU)
  Receive Date: 20250705
  Receipt Date: 20250705
  Transmission Date: 20251021
  Serious: Yes (Other)
  Sender: AZURITY PHARMACEUTICALS
  Company Number: RU-AZURITY PHARMACEUTICALS, INC.-AZR202506-001799

PATIENT
  Age: 13 Year

DRUGS (3)
  1. METHOTREXATE [Suspect]
     Active Substance: METHOTREXATE
     Indication: Diffuse large B-cell lymphoma stage III
     Route: 037
  2. METHOTREXATE [Suspect]
     Active Substance: METHOTREXATE
     Route: 065
  3. RITUXIMAB [Suspect]
     Active Substance: RITUXIMAB
     Indication: Diffuse large B-cell lymphoma stage III
     Route: 065

REACTIONS (4)
  - Neurotoxicity [Recovered/Resolved]
  - Seizure [Recovered/Resolved]
  - Anisocoria [Unknown]
  - Visual acuity reduced [Unknown]
